FAERS Safety Report 9717508 (Version 2)
Quarter: 2013Q4

REPORT INFORMATION
  Report Type: Spontaneous
  Country: US (occurrence: US)
  Receive Date: 20131127
  Receipt Date: 20131127
  Transmission Date: 20140711
  Serious: No
  Sender: FDA-Public Use
  Company Number: US-GILEAD-2009-0019681

PATIENT
  Sex: Female

DRUGS (6)
  1. LETAIRIS [Suspect]
     Indication: PULMONARY ARTERIAL HYPERTENSION
     Dates: start: 20081202
  2. REVATIO [Concomitant]
  3. WARFARIN [Concomitant]
  4. DIGOXIN [Concomitant]
  5. ASPIRIN [Concomitant]
  6. COLACE [Concomitant]

REACTIONS (1)
  - Fluid retention [Unknown]
